FAERS Safety Report 6523548-2 (Version None)
Quarter: 2009Q4

REPORT INFORMATION
  Report Type: 
  Country: None (occurrence: None)
  Receive Date: 20091231
  Receipt Date: 20091222
  Transmission Date: 20100525
  Serious: Yes (Death, Hospitalization)
  Sender: FDA-Public Use
  Company Number: HR-NOVOPROD-302565

PATIENT
  Age: 42 Year
  Sex: Male

DRUGS (18)
  1. NOVOMIX 30 [Suspect]
     Indication: TYPE 2 DIABETES MELLITUS
     Dosage: 63 IU, QD
     Route: 058
     Dates: start: 20080924, end: 20090204
  2. LANOXIN [Concomitant]
     Dosage: UNK
     Dates: start: 20080306
  3. CALCIUM CARBONATE [Concomitant]
     Dosage: UNK
     Dates: start: 20080813
  4. SEVELAMER HYDROCHLORIDE [Concomitant]
     Dosage: UNK
     Dates: start: 20080813
  5. MOXONIDINE [Concomitant]
     Dosage: UNK
     Dates: start: 20080714
  6. RAMIPRIL [Concomitant]
     Dosage: UNK
     Dates: start: 20080714
  7. LOSARTAN [Concomitant]
     Dosage: UNK
     Dates: start: 20080714
  8. FOLIC ACID [Concomitant]
     Dosage: UNK
     Dates: start: 20071101
  9. CLONAZEPAM [Concomitant]
     Dosage: UNK
     Dates: start: 20080714
  10. ALPRAZOLAM [Concomitant]
     Dosage: UNK
     Dates: start: 20080714
  11. EPOETIN BETA [Concomitant]
     Dosage: UNK
     Dates: start: 20070101
  12. HEPARIN [Concomitant]
     Dosage: UNK
     Dates: start: 20070101
  13. VITAMIN B12                        /00056201/ [Concomitant]
     Dosage: UNK
     Dates: start: 20080714
  14. SULPIRIDE [Concomitant]
     Dosage: UNK
     Dates: start: 20080630
  15. VENOFER [Concomitant]
     Dosage: UNK
     Dates: start: 20080101
  16. INSULIN [Concomitant]
     Dosage: UNK
     Dates: start: 20070401
  17. CARVEDILOL [Concomitant]
     Dosage: UNK
     Dates: start: 20080712
  18. PORTOLAC [Concomitant]
     Dosage: UNK
     Dates: start: 20081208

REACTIONS (3)
  - CONSTIPATION [None]
  - DEATH [None]
  - DIABETES MELLITUS INADEQUATE CONTROL [None]
